FAERS Safety Report 8486532-8 (Version None)
Quarter: 2012Q3

REPORT INFORMATION
  Report Type: 
  Country: None (occurrence: None)
  Receive Date: 20120703
  Receipt Date: 20120313
  Transmission Date: 20120928
  Serious: Yes (Hospitalization)
  Sender: FDA-Public Use
  Company Number: PHHY2012US055886

PATIENT
  Age: 95 Year
  Sex: Male

DRUGS (2)
  1. ENABLEX [Suspect]
     Dosage: 15 MG, UNK
     Route: 048
  2. ENABLEX [Suspect]
     Dosage: 7.5 MG, UNK
     Route: 048

REACTIONS (5)
  - PAIN [None]
  - MYALGIA [None]
  - ARTHRALGIA [None]
  - CEREBROVASCULAR ACCIDENT [None]
  - GAIT DISTURBANCE [None]
